FAERS Safety Report 16540941 (Version 4)
Quarter: 2020Q2

REPORT INFORMATION
  Report Type: Report from Study
  Country: US (occurrence: US)
  Receive Date: 20190708
  Receipt Date: 20200414
  Transmission Date: 20200713
  Serious: Yes (Other)
  Sender: FDA-Public Use
  Company Number: PHHY2019US153835

PATIENT
  Age: 23 Year
  Sex: Male

DRUGS (3)
  1. CYCLOPHOSPHAMIDE. [Concomitant]
     Active Substance: CYCLOPHOSPHAMIDE
     Indication: CHEMOTHERAPY
     Route: 065
  2. KYMRIAH [Suspect]
     Active Substance: TISAGENLECLEUCEL
     Indication: B-CELL TYPE ACUTE LEUKAEMIA
     Dosage: UNK UNK, ONCE/SINGLE
     Route: 041
     Dates: start: 2018
  3. FLUDARABINE [Concomitant]
     Active Substance: FLUDARABINE PHOSPHATE
     Indication: CHEMOTHERAPY
     Route: 065

REACTIONS (10)
  - Pyrexia [Unknown]
  - Hypogammaglobulinaemia [Unknown]
  - Rhinovirus infection [Unknown]
  - Cytokine release syndrome [Recovered/Resolved]
  - Cognitive disorder [Unknown]
  - Cytopenia [Unknown]
  - Fungal infection [Unknown]
  - Neurotoxicity [Recovered/Resolved]
  - Cytomegalovirus infection [Unknown]
  - Abnormal behaviour [Unknown]
